FAERS Safety Report 6266941-8 (Version None)
Quarter: 2009Q3

REPORT INFORMATION
  Report Type: 
  Country: None (occurrence: None)
  Receive Date: 20090714
  Receipt Date: 20090706
  Transmission Date: 20100115
  Serious: Yes (Hospitalization)
  Sender: FDA-Public Use
  Company Number: AU-ASTRAZENECA-2009SE04346

PATIENT
  Age: 46 Year
  Sex: Female

DRUGS (5)
  1. BUPIVACAINE HYDROCHLORIDE [Suspect]
     Route: 008
     Dates: start: 20090513, end: 20090515
  2. FENTANYL [Suspect]
     Route: 008
     Dates: start: 20090513, end: 20090515
  3. ENDONE [Suspect]
     Dosage: ONCE/SINGLE ADMINISTRATION
     Route: 048
     Dates: start: 20090515, end: 20090515
  4. ONDANSETRON HYDROCHLORIDE [Concomitant]
     Route: 060
     Dates: start: 20090515, end: 20090515
  5. PARACETAMOL [Concomitant]
     Route: 048
     Dates: start: 20090513, end: 20090515

REACTIONS (1)
  - RASH [None]
